FAERS Safety Report 5429678-0 (Version None)
Quarter: 2007Q3

REPORT INFORMATION
  Report Type: 
  Country: None (occurrence: None)
  Receive Date: 20070731
  Receipt Date: 20070409
  Transmission Date: 20080115
  Serious: No
  Sender: FDA-Public Use
  Company Number: US200705000952

PATIENT
  Age: 53 Year
  Sex: Female
  Weight: 121.5 kg

DRUGS (17)
  1. BYETTA [Suspect]
     Indication: TYPE 2 DIABETES MELLITUS
     Dosage: 5 UG, 2/D, SUBCUTANEOUS
     Route: 058
     Dates: start: 20070223, end: 20070301
  2. BYETTA [Suspect]
     Indication: TYPE 2 DIABETES MELLITUS
     Dosage: 5 UG, 2/D, SUBCUTANEOUS
     Route: 058
     Dates: start: 20070301
  3. EXANATIDE 5MCG [Concomitant]
  4. EXENATIDE 10MCG PEN, [Concomitant]
  5. ACTOS [Concomitant]
  6. GLIPIZIDE [Concomitant]
  7. MAXZIDE [Concomitant]
  8. PROZAC [Concomitant]
  9. XANAX [Concomitant]
  10. LAMICTAL [Concomitant]
  11. WELLBUTRIN SR [Concomitant]
  12. VITAMIN B COMPLEX CAP [Concomitant]
  13. ASPIRIN [Concomitant]
  14. ZYRTEC [Concomitant]
  15. SEROQUEL [Concomitant]
  16. ZOCOR [Concomitant]
  17. REQUIP [Concomitant]

REACTIONS (5)
  - DECREASED APPETITE [None]
  - NAUSEA [None]
  - RETCHING [None]
  - VOMITING [None]
  - WEIGHT DECREASED [None]
